FAERS Safety Report 4901650-6 (Version None)
Quarter: 2006Q1

REPORT INFORMATION
  Report Type: 
  Country: None (occurrence: None)
  Receive Date: 20060206
  Receipt Date: 20060202
  Transmission Date: 20060701
  Serious: Yes (Other)
  Sender: FDA-Public Use
  Company Number: US-GLAXOSMITHKLINE-A0592078A

PATIENT
  Age: 65 Year
  Sex: Female

DRUGS (4)
  1. BC ARTHRITIS STRENGTH POWDER [Suspect]
     Indication: PAIN
     Route: 048
  2. DARVOCET [Concomitant]
  3. PREVACID [Concomitant]
  4. ANTIHYPERTENSIVE [Concomitant]

REACTIONS (6)
  - CEREBROVASCULAR ACCIDENT [None]
  - CONTUSION [None]
  - CONVULSION [None]
  - HEPATOCELLULAR DAMAGE [None]
  - MENTAL DISORDER [None]
  - MYOCARDIAL INFARCTION [None]
